FAERS Safety Report 23884350 (Version 1)
Quarter: 2024Q2

REPORT INFORMATION
  Report Type: Spontaneous
  Country: US (occurrence: None)
  Receive Date: 20240522
  Receipt Date: 20240522
  Transmission Date: 20240715
  Serious: Yes (Hospitalization)
  Sender: FDA-Public Use
  Company Number: None

PATIENT
  Sex: Female
  Weight: 46.31 kg

DRUGS (2)
  1. SPRYCEL [Suspect]
     Active Substance: DASATINIB
  2. METHOTREXATE [Suspect]
     Active Substance: METHOTREXATE

REACTIONS (2)
  - Cellulitis [None]
  - Gait disturbance [None]

NARRATIVE: CASE EVENT DATE: 20230615
